FAERS Safety Report 21151089 (Version 1)
Quarter: 2022Q3

REPORT INFORMATION
  Report Type: Spontaneous
  Country: US (occurrence: US)
  Receive Date: 20220729
  Receipt Date: 20220729
  Transmission Date: 20221026
  Serious: No
  Sender: FDA-Public Use
  Company Number: US-STRIDES ARCOLAB LIMITED-2021SP030267

PATIENT
  Age: 31 Year
  Sex: Female

DRUGS (2)
  1. OSELTAMIVIR [Suspect]
     Active Substance: OSELTAMIVIR
     Indication: Product used for unknown indication
     Dosage: UNK
     Route: 065
     Dates: start: 20200611
  2. AMOXICILLIN [Suspect]
     Active Substance: AMOXICILLIN
     Indication: Evidence based treatment
     Dosage: UNK
     Route: 065
     Dates: start: 20200630

REACTIONS (1)
  - Maternal exposure during pregnancy [Unknown]
